FAERS Safety Report 19958218 (Version 2)
Quarter: 2021Q4

REPORT INFORMATION
  Report Type: Spontaneous
  Country: PT (occurrence: PT)
  Receive Date: 20211015
  Receipt Date: 20211102
  Transmission Date: 20220303
  Serious: Yes (Life-Threatening, Hospitalization, Other)
  Sender: FDA-Public Use
  Company Number: PT-MLMSERVICE-20211001-3139131-1

PATIENT
  Age: 69 Year
  Sex: Female
  Weight: 55 kg

DRUGS (1)
  1. LIDOCAINE HYDROCHLORIDE [Suspect]
     Active Substance: LIDOCAINE HYDROCHLORIDE
     Indication: Local anaesthesia
     Dosage: A TOTAL OF 1600MG AROUND SIX TIMES THE MAXIMUM RECOMMENDED DOSE OF 4.5 MILLIGRAMS PER KILOGRAM.
     Route: 065

REACTIONS (9)
  - Supraventricular extrasystoles [Recovered/Resolved]
  - Psychomotor hyperactivity [Recovered/Resolved]
  - Tachycardia [Recovered/Resolved]
  - Incorrect dose administered [Recovered/Resolved]
  - Local anaesthetic systemic toxicity [Recovered/Resolved]
  - Altered state of consciousness [Recovered/Resolved]
  - Ventricular extrasystoles [Recovered/Resolved]
  - Hypertension [Recovered/Resolved]
  - Hypotension [Recovered/Resolved]
